FAERS Safety Report 9261692 (Version 1)
Quarter: 2013Q2

REPORT INFORMATION
  Report Type: Spontaneous
  Country: US (occurrence: US)
  Receive Date: 20130429
  Receipt Date: 20130429
  Transmission Date: 20140414
  Serious: Yes (Hospitalization, Other)
  Sender: FDA-Public Use
  Company Number: US-B.I. PHARMACEUTICALS,INC./RIDGEFIELD-2013-BI-10500BP

PATIENT
  Sex: Female
  Weight: 54 kg

DRUGS (18)
  1. SPIRIVA [Suspect]
     Indication: CHRONIC OBSTRUCTIVE PULMONARY DISEASE
     Dosage: 18 MCG
     Route: 055
     Dates: start: 200401
  2. WARFARIN [Concomitant]
     Indication: HEART VALVE REPLACEMENT
     Dosage: 7.5 MG
     Route: 048
  3. NITROGLYCERIN [Concomitant]
     Indication: CHEST PAIN
     Dosage: (TABLET) STRENGTH: 0.4 MG;
  4. GARLIC [Concomitant]
     Indication: BLOOD CHOLESTEROL INCREASED
     Route: 048
  5. FISH OIL [Concomitant]
     Indication: BLOOD CHOLESTEROL INCREASED
     Dosage: 3000 MG
     Route: 048
  6. PEPCID [Concomitant]
     Indication: GASTROOESOPHAGEAL REFLUX DISEASE
     Dosage: 20 MG
     Route: 048
  7. PROTONIX [Concomitant]
     Indication: GASTROOESOPHAGEAL REFLUX DISEASE
     Dosage: 40 MG
     Route: 048
  8. COREG [Concomitant]
     Indication: HYPERTENSION
     Dosage: 25 MG
     Route: 048
  9. BETAMETHASONE VALERATE CREAM [Concomitant]
     Indication: VAGINAL DISORDER
  10. LOSARTAN [Concomitant]
     Indication: HYPERTENSION
     Dosage: 100 MG
     Route: 048
  11. POTASSIUM CHLORIDE [Concomitant]
     Indication: BLOOD POTASSIUM DECREASED
     Dosage: 10 MEQ
     Route: 048
  12. ZYRTEC [Concomitant]
     Indication: SEASONAL ALLERGY
     Dosage: 10 MG
     Route: 048
  13. XANAX [Concomitant]
     Indication: HYPERTENSION
     Dosage: 0.5 MG
     Route: 048
  14. PREMARIN VAGINAL CREAM [Concomitant]
     Indication: VAGINAL DISORDER
  15. FUROSEMIDE [Concomitant]
     Indication: SWELLING
     Dosage: 40 MG
     Route: 048
  16. POLYETHYLENE GLYCOL 3350 [Concomitant]
     Indication: CONSTIPATION
     Route: 048
  17. AMLODIPINE [Concomitant]
     Indication: HYPERTENSION
     Dosage: 5 MG
     Route: 048
  18. THERAPEUTIC MULTIVITAMIN WITH MINERALS [Concomitant]
     Route: 048

REACTIONS (6)
  - Osteoarthritis [Recovered/Resolved]
  - Chest pain [Recovered/Resolved]
  - Colon cancer recurrent [Not Recovered/Not Resolved]
  - Large intestine polyp [Not Recovered/Not Resolved]
  - Unevaluable event [Recovered/Resolved]
  - Dry mouth [Not Recovered/Not Resolved]
